FAERS Safety Report 6186115-9 (Version None)
Quarter: 2009Q2

REPORT INFORMATION
  Report Type: 
  Country: None (occurrence: None)
  Receive Date: 20090507
  Receipt Date: 20090507
  Transmission Date: 20091009
  Serious: Yes (Hospitalization)
  Sender: FDA-Public Use
  Company Number: None

PATIENT
  Sex: Female
  Weight: 96.2 kg

DRUGS (6)
  1. TAXOL [Suspect]
     Dosage: 164 MG
     Dates: end: 20090501
  2. ALBUTEROL [Concomitant]
  3. COMPAZINE [Concomitant]
  4. VALTREX [Concomitant]
  5. WARFARIN SODIUM [Concomitant]
  6. ZOFRAN [Concomitant]

REACTIONS (3)
  - INTERNATIONAL NORMALISED RATIO INCREASED [None]
  - PEPTIC ULCER HAEMORRHAGE [None]
  - PROTHROMBIN TIME PROLONGED [None]
